FAERS Safety Report 8342928-6 (Version None)
Quarter: 2012Q2

REPORT INFORMATION
  Report Type: 
  Country: None (occurrence: None)
  Receive Date: 20120508
  Receipt Date: 20120427
  Transmission Date: 20120825
  Serious: Yes (Death, Other)
  Sender: FDA-Public Use
  Company Number: AU-JNJFOC-20120310817

PATIENT

DRUGS (5)
  1. REMICADE [Suspect]
     Indication: PSORIASIS
     Route: 042
     Dates: start: 20080505
  2. LITHIUM CARBONATE [Concomitant]
  3. MAXOLON [Concomitant]
  4. MINIPRESS [Concomitant]
  5. METHOTREXATE [Concomitant]

REACTIONS (6)
  - MUSCULAR WEAKNESS [None]
  - POLLAKIURIA [None]
  - EYE DISORDER [None]
  - DEATH [None]
  - WEIGHT DECREASED [None]
  - DIPLOPIA [None]
